FAERS Safety Report 4961123-1 (Version None)
Quarter: 2006Q1

REPORT INFORMATION
  Report Type: 
  Country: None (occurrence: None)
  Receive Date: 20060328
  Receipt Date: 20060320
  Transmission Date: 20060701
  Serious: Yes (Life-Threatening, Hospitalization)
  Sender: FDA-Public Use
  Company Number: 2005169832

PATIENT
  Age: 55 Year
  Sex: Male
  Weight: 50 kg

DRUGS (6)
  1. MEDROL [Suspect]
     Indication: STATUS ASTHMATICUS
     Dosage: 48 MG (16 MG, 3 IN 1 D), ORAL
     Route: 048
     Dates: start: 20051016, end: 20051025
  2. BECOSULES CAPSULE (ASCORBIC ACID, CALCIUM PANTOTHENATE, FOLIC ACID, NI [Concomitant]
  3. BRO-ZEDEX (BROMHEXINE HYDROCHLORIDE, GUAIFENESIN, MENTHOL, TERBUTALINE [Concomitant]
  4. GUAIPHENESIN (GUAIPHENESIN) [Concomitant]
  5. BUDESONIDE [Concomitant]
  6. SOLU-MEDROL [Concomitant]

REACTIONS (5)
  - GASTRIC ULCER [None]
  - GASTRITIS [None]
  - HAEMATEMESIS [None]
  - MELAENA [None]
  - PANCREATIC DISORDER [None]
